FAERS Safety Report 24822333 (Version 3)
Quarter: 2025Q3

REPORT INFORMATION
  Report Type: Spontaneous
  Country: US (occurrence: US)
  Receive Date: 20250108
  Receipt Date: 20250816
  Transmission Date: 20251021
  Serious: No
  Sender: ALEXION PHARMACEUTICALS
  Company Number: US-AstraZeneca-CH-00777288AP

PATIENT
  Sex: Female

DRUGS (1)
  1. BREZTRI [Suspect]
     Active Substance: BUDESONIDE\FORMOTEROL\GLYCOPYRROLATE
     Route: 065

REACTIONS (9)
  - Device delivery system issue [Unknown]
  - Product use issue [Unknown]
  - Dyspnoea [Unknown]
  - Wrong technique in device usage process [Unknown]
  - Wrong technique in device usage process [Unknown]
  - Oxygen consumption decreased [Unknown]
  - Visual impairment [Unknown]
  - Breath sounds [Unknown]
  - Breath holding [Unknown]
